FAERS Safety Report 7091227-1 (Version None)
Quarter: 2010Q4

REPORT INFORMATION
  Report Type: 
  Country: None (occurrence: None)
  Receive Date: 20101109
  Receipt Date: 20101104
  Transmission Date: 20110411
  Serious: Yes (Hospitalization)
  Sender: FDA-Public Use
  Company Number: FR-ROCHE-738177

PATIENT
  Sex: Male
  Weight: 69 kg

DRUGS (9)
  1. ROCEPHIN [Suspect]
     Route: 065
     Dates: start: 20100617, end: 20100702
  2. CIFLOX [Suspect]
     Route: 065
     Dates: start: 20100617, end: 20100702
  3. HEMIGOXINE NATIVELLE [Concomitant]
     Dosage: DRUG NAME REPORTED AS HEMIGOXINE
     Dates: start: 20100101
  4. CORDARONE [Concomitant]
     Dates: start: 20100101
  5. LEVOTHYROXINE SODIUM [Concomitant]
  6. LEVOTHYROXINE SODIUM [Concomitant]
  7. SINTROM [Concomitant]
  8. DIGOXIN [Concomitant]
  9. CORDARONE [Concomitant]

REACTIONS (3)
  - HYPERKALAEMIA [None]
  - OVERDOSE [None]
  - RENAL FAILURE ACUTE [None]
